FAERS Safety Report 13321579 (Version 3)
Quarter: 2017Q2

REPORT INFORMATION
  Report Type: Spontaneous
  Country: IT (occurrence: IT)
  Receive Date: 20170310
  Receipt Date: 20170412
  Transmission Date: 20170830
  Serious: Yes (Other)
  Sender: FDA-Public Use
  Company Number: IT-BRISTOL-MYERS SQUIBB COMPANY-BMS-2017-020286

PATIENT
  Age: 19 Year
  Sex: Female

DRUGS (2)
  1. LANSOPRAZOLE ALMUS [Concomitant]
     Indication: PRODUCT USED FOR UNKNOWN INDICATION
     Route: 065
  2. ABILIFY [Suspect]
     Active Substance: ARIPIPRAZOLE
     Indication: PRODUCT USED FOR UNKNOWN INDICATION
     Dosage: UNK
     Route: 065
     Dates: start: 20170225, end: 20170226

REACTIONS (8)
  - Headache [Unknown]
  - Petit mal epilepsy [Unknown]
  - Abdominal pain upper [Recovering/Resolving]
  - Malaise [Recovering/Resolving]
  - Loss of consciousness [Unknown]
  - Bladder sphincter atony [Unknown]
  - Photophobia [Unknown]
  - Mood altered [Unknown]

NARRATIVE: CASE EVENT DATE: 20170226
